FAERS Safety Report 20129090 (Version 1)
Quarter: 2021Q4

REPORT INFORMATION
  Report Type: Spontaneous
  Country: CA (occurrence: None)
  Receive Date: 20211130
  Receipt Date: 20211130
  Transmission Date: 20220304
  Serious: Yes (Other)
  Sender: FDA-Public Use
  Company Number: CA-ROCHE-2964950

PATIENT
  Age: 71 Year
  Sex: Male

DRUGS (21)
  1. RITUXIMAB [Suspect]
     Active Substance: RITUXIMAB
     Indication: Rheumatoid arthritis
     Route: 041
  2. AMARYL [Concomitant]
     Active Substance: GLIMEPIRIDE
     Dosage: INTRA-NASAL
  3. ARTHROTEC [Concomitant]
     Active Substance: DICLOFENAC SODIUM\MISOPROSTOL
  4. BENADRYL [Concomitant]
     Active Substance: DIPHENHYDRAMINE HYDROCHLORIDE
     Indication: Premedication
     Route: 048
  5. CALCIUM [Concomitant]
     Active Substance: CALCIUM
  6. CEFUROXIME [Concomitant]
     Active Substance: CEFUROXIME
  7. CURCUMIN [Concomitant]
     Active Substance: CURCUMIN
  8. ENBREL [Concomitant]
     Active Substance: ETANERCEPT
  9. FENTANYL [Concomitant]
     Active Substance: FENTANYL
     Dosage: PATCH
  10. HYPROMELLOSES [Concomitant]
     Active Substance: HYPROMELLOSES
     Route: 047
  11. LYRICA [Concomitant]
     Active Substance: PREGABALIN
  12. MAGNESIUM [Concomitant]
     Active Substance: MAGNESIUM
  13. METHYLPREDNISOLONE SODIUM SUCCINATE [Concomitant]
     Active Substance: METHYLPREDNISOLONE SODIUM SUCCINATE
     Indication: Premedication
     Route: 042
  14. NAPROXEN [Concomitant]
     Active Substance: NAPROXEN
  15. PREDNISONE [Concomitant]
     Active Substance: PREDNISONE
     Indication: Neck pain
  16. PREDNISONE [Concomitant]
     Active Substance: PREDNISONE
     Indication: Headache
  17. PREDNISONE [Concomitant]
     Active Substance: PREDNISONE
     Indication: Arthralgia
  18. PROLIA [Concomitant]
     Active Substance: DENOSUMAB
     Route: 058
  19. TYLENOL [Concomitant]
     Active Substance: ACETAMINOPHEN
     Route: 048
  20. VITAMIN B COMPLEX [Concomitant]
     Active Substance: CYANOCOBALAMIN\DEXPANTHENOL\NIACINAMIDE\PYRIDOXINE HYDROCHLORIDE\RIBOFLAVIN 5^-PHOSPHATE SODIUM\THIA
  21. ZINC [Concomitant]
     Active Substance: ZINC

REACTIONS (12)
  - Allergy to metals [Not Recovered/Not Resolved]
  - Arthralgia [Not Recovered/Not Resolved]
  - Drug hypersensitivity [Not Recovered/Not Resolved]
  - Eye irritation [Not Recovered/Not Resolved]
  - Headache [Not Recovered/Not Resolved]
  - Interstitial lung disease [Not Recovered/Not Resolved]
  - Neck pain [Not Recovered/Not Resolved]
  - Oral candidiasis [Not Recovered/Not Resolved]
  - Oropharyngitis fungal [Not Recovered/Not Resolved]
  - Osteoporosis [Not Recovered/Not Resolved]
  - Rheumatoid arthritis [Not Recovered/Not Resolved]
  - Sensation of foreign body [Not Recovered/Not Resolved]
